FAERS Safety Report 8903919 (Version 1)
Quarter: 2012Q4

REPORT INFORMATION
  Report Type: 
  Country: US (occurrence: US)
  Receive Date: 20121113
  Receipt Date: 20121113
  Transmission Date: 20130627
  Serious: No
  Sender: FDA-Public Use
  Company Number: US-AMGEN-USASP2012009815

PATIENT
  Sex: Female

DRUGS (5)
  1. ENBREL [Suspect]
     Indication: PRODUCT USED FOR UNKNOWN INDICATION
     Dosage: 50 mg, 2 times/wk
     Route: 058
  2. ZOLOFT [Concomitant]
     Dosage: 50 mg, UNK
  3. BUSPAR [Concomitant]
     Dosage: 5 mg, UNK
  4. MULTIVITAMIN                       /00097801/ [Concomitant]
  5. OLUX E [Concomitant]

REACTIONS (3)
  - Premenstrual headache [Unknown]
  - Migraine [Unknown]
  - Injection site bruising [Unknown]
